FAERS Safety Report 9029648 (Version 1)
Quarter: 2013Q1

REPORT INFORMATION
  Report Type: Spontaneous
  Country: US (occurrence: US)
  Receive Date: 20130125
  Receipt Date: 20130125
  Transmission Date: 20140127
  Serious: Yes (Hospitalization)
  Sender: FDA-Public Use
  Company Number: US-SANOFI-AVENTIS-2013SA003379

PATIENT
  Age: 51 Year
  Sex: Female

DRUGS (3)
  1. LANTUS SOLOSTAR [Suspect]
     Dosage: DOSE:25 UNIT(S)
     Route: 058
     Dates: start: 2012
  2. SOLOSTAR [Suspect]
     Dates: start: 2012
  3. NOVOLOG [Suspect]
     Route: 065

REACTIONS (4)
  - Abdominal distension [Unknown]
  - Hyperglycaemia [Unknown]
  - Injection site pain [Unknown]
  - Injection site mass [Unknown]
